FAERS Safety Report 13087949 (Version 1)
Quarter: 2017Q1

REPORT INFORMATION
  Report Type: Spontaneous
  Country: US (occurrence: US)
  Receive Date: 20170105
  Receipt Date: 20170105
  Transmission Date: 20170428
  Serious: No
  Sender: FDA-Public Use
  Company Number: US-BAYER-2017-002055

PATIENT
  Sex: Male

DRUGS (9)
  1. ALEVE [Suspect]
     Active Substance: NAPROXEN SODIUM
     Dosage: UNK
  2. HYDROCORTISONE. [Concomitant]
     Active Substance: HYDROCORTISONE
     Dosage: 1 DF, TID
     Route: 061
     Dates: start: 20130416
  3. FLUTICASONE. [Concomitant]
     Active Substance: FLUTICASONE
     Dosage: 1 DF, QD
     Route: 045
     Dates: start: 20150214
  4. BAYER ASPIRIN [Suspect]
     Active Substance: ASPIRIN
     Dosage: UNK
  5. CHANTIX [Concomitant]
     Active Substance: VARENICLINE TARTRATE
     Dosage: 0.5 MG, QD
     Dates: start: 20161103
  6. CHANTIX [Concomitant]
     Active Substance: VARENICLINE TARTRATE
     Dosage: 1 MG, BID
     Route: 048
  7. FLUTICASONE. [Concomitant]
     Active Substance: FLUTICASONE
     Dosage: 1 DF, QD
     Route: 045
     Dates: start: 20120807
  8. HYDROXYZINE PAMOATE. [Concomitant]
     Active Substance: HYDROXYZINE PAMOATE
     Indication: URTICARIA
     Dosage: 50 MG, QID, PRN
     Route: 048
     Dates: start: 20151208
  9. CHLORHEXIDINE GLUCONATE. [Concomitant]
     Active Substance: CHLORHEXIDINE GLUCONATE
     Dosage: UNK UNK, BID
     Dates: start: 20150520

REACTIONS (2)
  - Urticaria [Unknown]
  - Drug hypersensitivity [Unknown]
